FAERS Safety Report 7384134-8 (Version None)
Quarter: 2011Q1

REPORT INFORMATION
  Report Type: 
  Country: None (occurrence: None)
  Receive Date: 20110330
  Receipt Date: 20110325
  Transmission Date: 20110831
  Serious: Yes (Other)
  Sender: FDA-Public Use
  Company Number: A0920081A

PATIENT
  Age: 81 Year
  Sex: Male

DRUGS (19)
  1. MAGNESIUM [Concomitant]
  2. VITAMIN B1 TAB [Concomitant]
  3. ANTACID TAB [Concomitant]
  4. GLUCOTROL [Concomitant]
  5. FISH OIL [Concomitant]
  6. ESTER C [Concomitant]
  7. LISINOPRIL [Concomitant]
  8. SARNA SENSITIVE LOTION [Suspect]
     Indication: DRY SKIN
     Dosage: 1APP SINGLE DOSE
     Route: 061
     Dates: start: 20110317, end: 20110317
  9. LANTUS [Concomitant]
  10. ZOCOR [Concomitant]
  11. ADVAIR DISKUS 100/50 [Concomitant]
  12. HYDROCHLOROTHIAZIDE [Concomitant]
  13. BYETTA [Concomitant]
  14. VITAMIN B [Concomitant]
  15. ZINC [Concomitant]
  16. ACTOS [Concomitant]
  17. ASPIRIN [Concomitant]
  18. SPIRIVA [Concomitant]
  19. UNKNOWN MEDICATION [Concomitant]

REACTIONS (4)
  - DYSPNOEA [None]
  - ANAPHYLACTIC REACTION [None]
  - DRUG INEFFECTIVE [None]
  - APPLICATION SITE URTICARIA [None]
